FAERS Safety Report 24063213 (Version 2)
Quarter: 2024Q3

REPORT INFORMATION
  Report Type: Report from Study
  Country: DE (occurrence: DE)
  Receive Date: 20240709
  Receipt Date: 20240710
  Transmission Date: 20241017
  Serious: Yes (Other)
  Sender: EXELIXIS
  Company Number: DE-IPSEN Group, Research and Development-2021-27498

PATIENT
  Age: 61 Year
  Sex: Male
  Weight: 83 kg

DRUGS (17)
  1. CABOZANTINIB [Suspect]
     Active Substance: CABOZANTINIB
     Indication: Renal cell carcinoma
     Dosage: 40 MG, QD
     Route: 048
     Dates: start: 20210714
  2. NIVOLUMAB [Suspect]
     Active Substance: NIVOLUMAB
     Indication: Renal cell carcinoma
     Dosage: 240 MG
     Route: 042
     Dates: start: 20210714
  3. AMLODIPINE BESYLATE [Concomitant]
     Active Substance: AMLODIPINE BESYLATE
     Indication: Hypertension
     Dosage: 10 MG, DAILY
  4. BISOPROLOL [Concomitant]
     Active Substance: BISOPROLOL\BISOPROLOL FUMARATE
     Indication: Hypertension
     Dosage: 5 MG, DAILY
  5. CITALOPRAM [Concomitant]
     Active Substance: CITALOPRAM\CITALOPRAM HYDROBROMIDE
     Indication: Prophylaxis
     Dosage: 20 MG, DAILY
  6. CITALOPRAM [Concomitant]
     Active Substance: CITALOPRAM\CITALOPRAM HYDROBROMIDE
     Indication: Affective disorder
  7. METAMIZOL [Concomitant]
     Active Substance: METAMIZOLE SODIUM
     Indication: Pain prophylaxis
     Dosage: 500 MG, BID
  8. PANTOPRAZOLE SODIUM [Concomitant]
     Active Substance: PANTOPRAZOLE SODIUM
     Indication: Prophylaxis
     Dosage: 40 MG, DAILY
  9. PANTOPRAZOLE SODIUM [Concomitant]
     Active Substance: PANTOPRAZOLE SODIUM
     Indication: Prophylaxis
  10. TORSEMIDE [Concomitant]
     Active Substance: TORSEMIDE
     Indication: Prophylaxis
     Dosage: 10 MG
  11. MORPHINE [Concomitant]
     Active Substance: MORPHINE
     Indication: Dyspnoea
     Dosage: 4 OTHER, THREE TIMES DAILY
     Dates: end: 202108
  12. ALBUTEROL [Concomitant]
     Active Substance: ALBUTEROL
     Indication: Prophylaxis
     Dosage: 0.1 MG, AS NEEDED
     Route: 050
  13. ALBUTEROL [Concomitant]
     Active Substance: ALBUTEROL
     Indication: Dyspnoea
  14. ACETYLCYSTEINE [Concomitant]
     Active Substance: ACETYLCYSTEINE
     Indication: Prophylaxis
     Dosage: 1 OTHER, AS NEEDED
  15. ACETYLCYSTEINE [Concomitant]
     Active Substance: ACETYLCYSTEINE
     Indication: Secretion discharge
  16. SODIUM PERCHLORATE [Concomitant]
     Active Substance: SODIUM PERCHLORATE
     Indication: Thyroid disorder
     Dates: end: 20210803
  17. ASPIRIN [Concomitant]
     Active Substance: ASPIRIN
     Indication: Peripheral arterial occlusive disease

REACTIONS (2)
  - Polyneuropathy [Not Recovered/Not Resolved]
  - Dizziness [Not Recovered/Not Resolved]

NARRATIVE: CASE EVENT DATE: 20210812
